FAERS Safety Report 8362729-2 (Version None)
Quarter: 2012Q2

REPORT INFORMATION
  Report Type: 
  Country: None (occurrence: None)
  Receive Date: 20120514
  Receipt Date: 20120426
  Transmission Date: 20120825
  Serious: Yes (Other)
  Sender: FDA-Public Use
  Company Number: US_1192024

PATIENT
  Age: 80 Year
  Sex: Female

DRUGS (3)
  1. VIGAMOX [Suspect]
     Indication: ENDOPHTHALMITIS
     Dosage: SEE IMAGE: BID OPHTHALMIC, BID OPHTHALMIC, ONCE A DAY OPHTHALMIC
     Route: 047
  2. VIGAMOX [Suspect]
     Indication: ANTIBIOTIC PROPHYLAXIS
     Dosage: SEE IMAGE: BID OPHTHALMIC, BID OPHTHALMIC, ONCE A DAY OPHTHALMIC
     Route: 047
  3. PREDNISOLONE ACETATE [Concomitant]

REACTIONS (7)
  - CONJUNCTIVAL HYPERAEMIA [None]
  - ENDOPHTHALMITIS [None]
  - VISUAL ACUITY REDUCED [None]
  - VITRITIS [None]
  - RETINAL DETACHMENT [None]
  - SCLERAL DISORDER [None]
  - EYE PAIN [None]
